FAERS Safety Report 17766070 (Version 1)
Quarter: 2020Q2

REPORT INFORMATION
  Report Type: Report from Study
  Country: ES (occurrence: ES)
  Receive Date: 20200511
  Receipt Date: 20200511
  Transmission Date: 20200714
  Serious: Yes (Life-Threatening)
  Sender: FDA-Public Use
  Company Number: ES-JNJFOC-20190736128

PATIENT
  Age: 23 Year
  Sex: Female

DRUGS (1)
  1. REMICADE [Suspect]
     Active Substance: INFLIXIMAB
     Indication: CROHN^S DISEASE
     Route: 042
     Dates: start: 20040128, end: 20040212

REACTIONS (1)
  - Infusion related reaction [Recovered/Resolved with Sequelae]

NARRATIVE: CASE EVENT DATE: 20040212
